FAERS Safety Report 18091314 (Version 2)
Quarter: 2020Q3

REPORT INFORMATION
  Report Type: Spontaneous
  Country: JP (occurrence: JP)
  Receive Date: 20200730
  Receipt Date: 20200909
  Transmission Date: 20201103
  Serious: Yes (Hospitalization, Other)
  Sender: FDA-Public Use
  Company Number: JP-LUPIN PHARMACEUTICALS INC.-2020-04065

PATIENT
  Age: 28 Year
  Sex: Female
  Weight: 127 kg

DRUGS (3)
  1. QUETIAPINE FUMARATE. [Suspect]
     Active Substance: QUETIAPINE FUMARATE
     Dosage: 200 MILLIGRAM, BID (ADDITIONAL 50 MG)
     Route: 065
  2. QUETIAPINE FUMARATE. [Suspect]
     Active Substance: QUETIAPINE FUMARATE
     Dosage: 150 MILLIGRAM, QD (DOSE REDUCED)
     Route: 065
  3. QUETIAPINE FUMARATE. [Suspect]
     Active Substance: QUETIAPINE FUMARATE
     Indication: MAJOR DEPRESSION
     Dosage: 150 MILLIGRAM, BID, FOR 7 YERAS
     Route: 065

REACTIONS (6)
  - Weight increased [Recovering/Resolving]
  - Diplopia [Recovered/Resolved]
  - Idiopathic intracranial hypertension [Recovering/Resolving]
  - VIth nerve paralysis [Recovering/Resolving]
  - Papilloedema [Unknown]
  - Visual field defect [Recovering/Resolving]
